FAERS Safety Report 25077376 (Version 3)
Quarter: 2025Q2

REPORT INFORMATION
  Report Type: Spontaneous
  Country: US (occurrence: US)
  Receive Date: 20250314
  Receipt Date: 20250502
  Transmission Date: 20250717
  Serious: No
  Sender: BRISTOL MYERS SQUIBB
  Company Number: US-BRISTOL-MYERS SQUIBB COMPANY-2025-038572

PATIENT
  Age: 62 Year
  Sex: Female

DRUGS (1)
  1. REVLIMID [Suspect]
     Active Substance: LENALIDOMIDE
     Indication: Plasma cell myeloma in remission
     Route: 048

REACTIONS (11)
  - Paraesthesia [Recovered/Resolved]
  - Insurance issue [Unknown]
  - Abdominal discomfort [Unknown]
  - Rash [Recovered/Resolved]
  - Skin discolouration [Unknown]
  - Therapy interrupted [Unknown]
  - Dry mouth [Unknown]
  - Blood potassium decreased [Unknown]
  - Constipation [Unknown]
  - Tinnitus [Unknown]
  - Rash macular [Unknown]
